FAERS Safety Report 13034979 (Version 1)
Quarter: 2016Q4

REPORT INFORMATION
  Report Type: Spontaneous
  Country: CO (occurrence: CO)
  Receive Date: 20161216
  Receipt Date: 20161216
  Transmission Date: 20170207
  Serious: Yes (Life-Threatening, Other)
  Sender: FDA-Public Use
  Company Number: CO-SA-2016SA228603

PATIENT
  Age: 68 Year
  Sex: Male

DRUGS (1)
  1. PLAVIX [Suspect]
     Active Substance: CLOPIDOGREL BISULFATE
     Indication: ANTIPLATELET THERAPY
     Route: 048
     Dates: start: 200210

REACTIONS (3)
  - Coronary artery disease [Unknown]
  - Vascular stent occlusion [Unknown]
  - Angiopathy [Unknown]

NARRATIVE: CASE EVENT DATE: 2002
